FAERS Safety Report 7098406-8 (Version None)
Quarter: 2010Q4

REPORT INFORMATION
  Report Type: 
  Country: None (occurrence: None)
  Receive Date: 20101110
  Receipt Date: 20101110
  Transmission Date: 20110411
  Serious: Yes (Hospitalization)
  Sender: FDA-Public Use
  Company Number: None

PATIENT
  Sex: Male
  Weight: 112 kg

DRUGS (2)
  1. INTRON A [Suspect]
     Dosage: 40 MG
     Dates: end: 20101006
  2. SANDOSTATIN [Suspect]
     Dosage: 20 MG
     Dates: end: 20100920

REACTIONS (1)
  - BLOOD TRIGLYCERIDES INCREASED [None]
